FAERS Safety Report 23206307 (Version 1)
Quarter: 2023Q4

REPORT INFORMATION
  Report Type: Report from Study
  Country: GB (occurrence: GB)
  Receive Date: 20231120
  Receipt Date: 20231120
  Transmission Date: 20240110
  Serious: Yes (Other)
  Sender: FDA-Public Use
  Company Number: GB-SANDOZ-SDZ2023GB053350

PATIENT
  Sex: Female

DRUGS (1)
  1. HYRIMOZ [Suspect]
     Active Substance: ADALIMUMAB-ADAZ
     Indication: Psoriasis
     Dosage: 40 MG, EOW
     Route: 058
     Dates: start: 20231109

REACTIONS (6)
  - Cardiac flutter [Unknown]
  - Taste disorder [Unknown]
  - Chest discomfort [Unknown]
  - Adverse reaction [Unknown]
  - Rash [Recovered/Resolved]
  - Fatigue [Unknown]
